FAERS Safety Report 10086730 (Version 2)
Quarter: 2014Q2

REPORT INFORMATION
  Report Type: Spontaneous
  Country: US (occurrence: US)
  Receive Date: 20140418
  Receipt Date: 20140515
  Transmission Date: 20141212
  Serious: Yes (Other)
  Sender: FDA-Public Use
  Company Number: US-JNJFOC-20140409941

PATIENT
  Sex: Female

DRUGS (3)
  1. INVOKANA [Suspect]
     Indication: PRODUCT USED FOR UNKNOWN INDICATION
     Route: 048
     Dates: start: 2014
  2. NOVOLOG [Concomitant]
  3. METFORMIN [Concomitant]

REACTIONS (2)
  - Weight decreased [Not Recovered/Not Resolved]
  - Glycosylated haemoglobin increased [Not Recovered/Not Resolved]
